FAERS Safety Report 8037843-1 (Version None)
Quarter: 2012Q1

REPORT INFORMATION
  Report Type: 
  Country: None (occurrence: None)
  Receive Date: 20120111
  Receipt Date: 20120107
  Transmission Date: 20120608
  Serious: Yes (Death, Other)
  Sender: FDA-Public Use
  Company Number: PHEH2012US000691

PATIENT
  Sex: Male
  Weight: 107.7 kg

DRUGS (9)
  1. LISINOPRIL [Concomitant]
     Dosage: 10 MG, UNK
  2. PRILOSEC [Concomitant]
     Indication: GASTROOESOPHAGEAL REFLUX DISEASE
     Dosage: 20 MG/DAY
  3. IBUPROFEN [Concomitant]
  4. VITAMIN D [Concomitant]
  5. GILENYA [Suspect]
     Indication: MULTIPLE SCLEROSIS
     Dosage: 0.5 MG, QD
     Route: 048
     Dates: start: 20101230
  6. TAMSULOSIN HCL [Concomitant]
     Dosage: 0.4 MG, UNK
  7. GABAPENTIN [Concomitant]
     Dosage: 800 MG, UNK
  8. TIZANIDINE HCL [Concomitant]
     Dosage: 4 MG, UNK
  9. FLOMAX [Concomitant]
     Indication: POLLAKIURIA
     Dosage: 0.4 MG, UNK
     Dates: start: 20101117

REACTIONS (6)
  - DEATH [None]
  - PAIN IN EXTREMITY [None]
  - BLADDER OUTLET OBSTRUCTION [None]
  - MUSCLE SPASMS [None]
  - NEUROGENIC BLADDER [None]
  - POLLAKIURIA [None]
